FAERS Safety Report 5204380-9 (Version None)
Quarter: 2007Q1

REPORT INFORMATION
  Report Type: 
  Country: None (occurrence: None)
  Receive Date: 20070110
  Receipt Date: 20060310
  Transmission Date: 20070707
  Serious: No
  Sender: FDA-Public Use
  Company Number: US-BRISTOL-MYERS SQUIBB COMPANY-13310883

PATIENT
  Age: 28 Year
  Sex: Female
  Weight: 100 kg

DRUGS (4)
  1. ABILIFY [Suspect]
     Indication: BIPOLAR DISORDER
     Route: 048
     Dates: start: 20041201
  2. PROVIGIL [Concomitant]
  3. STRATTERA [Concomitant]
  4. ZOLOFT [Concomitant]

REACTIONS (1)
  - WEIGHT INCREASED [None]
